FAERS Safety Report 5062140-6 (Version None)
Quarter: 2006Q3

REPORT INFORMATION
  Report Type: 
  Country: None (occurrence: None)
  Receive Date: 20060721
  Receipt Date: 20060711
  Transmission Date: 20061208
  Serious: Yes (Hospitalization, Disabling)
  Sender: FDA-Public Use
  Company Number: FRWYE824011JUL05

PATIENT
  Age: 57 Year
  Sex: Male

DRUGS (7)
  1. EFFEXOR [Suspect]
     Indication: DEPRESSION
     Dosage: 200 MG TOTAL DAILY ORAL
     Route: 048
     Dates: start: 20030315, end: 20050125
  2. SOLIAN (AMISULPRIDE) [Concomitant]
  3. ATARAX [Concomitant]
  4. XANAX [Concomitant]
  5. ZOCOR [Concomitant]
  6. AOTAL (ACAMPROSATE) [Concomitant]
  7. INEXIUM (ESOMEPRAZOLE) [Concomitant]

REACTIONS (9)
  - BLOOD IMMUNOGLOBULIN E INCREASED [None]
  - DERMATITIS PSORIASIFORM [None]
  - EOSINOPHILIA [None]
  - HYPERKERATOSIS [None]
  - HYPERKERATOSIS PALMARIS AND PLANTARIS [None]
  - PARONYCHIA [None]
  - SKIN EXFOLIATION [None]
  - SKIN FISSURES [None]
  - WEIGHT DECREASED [None]
